FAERS Safety Report 23484567 (Version 2)
Quarter: 2024Q1

REPORT INFORMATION
  Report Type: Report from Study
  Country: CN (occurrence: CN)
  Receive Date: 20240206
  Receipt Date: 20240221
  Transmission Date: 20240409
  Serious: Yes (Death)
  Sender: FDA-Public Use
  Company Number: CN-BoehringerIngelheim-2020-BI-046989

PATIENT
  Age: 62 Year
  Sex: Female
  Weight: 44 kg

DRUGS (4)
  1. AFATINIB DIMALEATE [Suspect]
     Active Substance: AFATINIB DIMALEATE
     Indication: Non-small cell lung cancer
     Route: 048
     Dates: start: 20200724
  2. flupentixol and melitracen tablets [Concomitant]
     Indication: Anxiety
     Route: 048
     Dates: start: 2017
  3. estazolam tablet [Concomitant]
     Indication: Anxiety
     Route: 048
     Dates: start: 20200818, end: 20200822
  4. estazolam tablet [Concomitant]
     Route: 048
     Dates: start: 20200917, end: 20200924

REACTIONS (6)
  - COVID-19 [Fatal]
  - Palmar-plantar erythrodysaesthesia syndrome [Not Recovered/Not Resolved]
  - Humerus fracture [Not Recovered/Not Resolved]
  - Hepatic function abnormal [Not Recovered/Not Resolved]
  - Rash pruritic [Recovered/Resolved]
  - Hypokalaemia [Not Recovered/Not Resolved]

NARRATIVE: CASE EVENT DATE: 20200725
